FAERS Safety Report 9802818 (Version 1)
Quarter: 2014Q1

REPORT INFORMATION
  Report Type: Spontaneous
  Country: FR (occurrence: FR)
  Receive Date: 20140108
  Receipt Date: 20140108
  Transmission Date: 20141002
  Serious: Yes (Hospitalization)
  Sender: FDA-Public Use
  Company Number: FR-ROCHE-1329684

PATIENT
  Age: 83 Year
  Sex: Female

DRUGS (11)
  1. ROCEPHINE [Suspect]
     Indication: LUNG INFECTION
     Route: 042
     Dates: start: 20130116, end: 20130118
  2. RIVOTRIL [Suspect]
     Indication: PRODUCT USED FOR UNKNOWN INDICATION
     Dosage: 2.5 MG/ML
     Route: 048
     Dates: end: 20130118
  3. LAROXYL [Suspect]
     Indication: PRODUCT USED FOR UNKNOWN INDICATION
     Route: 065
     Dates: end: 20130118
  4. IMOVANE [Suspect]
     Indication: PRODUCT USED FOR UNKNOWN INDICATION
     Route: 048
     Dates: end: 20130118
  5. FLAGYL [Concomitant]
  6. LEVOTHYROX [Concomitant]
  7. PLAVIX [Concomitant]
  8. XALATAN [Concomitant]
     Route: 047
  9. ARANESP [Concomitant]
  10. CLAFORAN [Concomitant]
  11. LEPTICUR [Concomitant]

REACTIONS (2)
  - Hypertonia [Recovered/Resolved]
  - Myoclonus [Recovered/Resolved]
